FAERS Safety Report 20903955 (Version 2)
Quarter: 2022Q2

REPORT INFORMATION
  Report Type: Spontaneous
  Country: DE (occurrence: DE)
  Receive Date: 20220602
  Receipt Date: 20220615
  Transmission Date: 20220721
  Serious: Yes (Hospitalization, Other)
  Sender: FDA-Public Use
  Company Number: DE-TEVA-2022-DE-2041052

PATIENT
  Age: 53 Year
  Sex: Female

DRUGS (2)
  1. LEVOTHYROXINE [Suspect]
     Active Substance: LEVOTHYROXINE
     Indication: Autoimmune thyroiditis
     Dosage: 88 MICROGRAM DAILY; INITIAL DOSE
     Route: 065
  2. PEMBROLIZUMAB [Suspect]
     Active Substance: PEMBROLIZUMAB
     Indication: Nodular melanoma
     Dosage: 400 MG ONCE IN 6 WEEKS
     Route: 065
     Dates: start: 202003

REACTIONS (4)
  - Autoimmune thyroiditis [Recovered/Resolved]
  - Primary adrenal insufficiency [Recovered/Resolved]
  - Addison^s disease [Recovered/Resolved]
  - Drug ineffective [Unknown]
